FAERS Safety Report 10142785 (Version 1)
Quarter: 2014Q2

REPORT INFORMATION
  Report Type: Spontaneous
  Country: FR (occurrence: None)
  Receive Date: 20140428
  Receipt Date: 20140428
  Transmission Date: 20141212
  Serious: Yes (Hospitalization, Other)
  Sender: FDA-Public Use
  Company Number: AUR-APL-2014-04837

PATIENT
  Age: 81 Year
  Sex: Male

DRUGS (7)
  1. BISOPROLOL (BISOPROLOL) [Suspect]
     Indication: PRODUCT USED FOR UNKNOWN INDICATION
     Dosage: (3.75 MG,1 D)
     Route: 048
     Dates: start: 201205, end: 201402
  2. CORDARONE (AMIODARONE HYDROCHLORIDE)/ORAL/TABLET/200 MILLIGRAMS(S) [Suspect]
     Indication: ATRIAL FIBRILLATION
     Dosage: 200 MG, 5 IN 1 WK)
     Route: 048
     Dates: start: 201205, end: 201402
  3. EXELON (RIVASTIGMINE) [Suspect]
     Indication: DEMENTIA ALZHEIMER^S TYPE
     Dosage: (9.5 MG,1 D)
     Route: 062
     Dates: start: 201309, end: 201402
  4. INEXIUM (ESOMEPRAZOLE MAGNESIUM) (ESOMEPRAZOLE MAGNESIUM) [Concomitant]
  5. PREVISCAN (PENTOXIFYLLINE) [Concomitant]
  6. SIMVASTATIN [Concomitant]
  7. KARDEGIC (ACETYLSALICYLATE LYSINE) [Concomitant]

REACTIONS (4)
  - Bradycardia [None]
  - Dyspnoea [None]
  - Renal impairment [None]
  - Sinoatrial block [None]
